FAERS Safety Report 12658835 (Version 1)
Quarter: 2016Q3

REPORT INFORMATION
  Report Type: Spontaneous
  Country: US (occurrence: None)
  Receive Date: 20160816
  Receipt Date: 20160816
  Transmission Date: 20161109
  Serious: Yes (Hospitalization)
  Sender: FDA-Public Use
  Company Number: None

PATIENT
  Age: 87 Year
  Sex: Male
  Weight: 69 kg

DRUGS (11)
  1. LISINOPRIL, 5 MG [Suspect]
     Active Substance: LISINOPRIL
     Indication: HYPERTENSION
     Route: 048
  2. DONEPEZIL (ARICEPT) [Concomitant]
  3. CHOLECALCIFEROL (VITAMIN D) [Concomitant]
  4. SIMVASTATIN (ZOCOR) [Concomitant]
  5. NEURONTIN [Concomitant]
     Active Substance: GABAPENTIN
  6. LISINOPRIL (PRINIVIL;ZESTRIL) [Concomitant]
  7. MEMANTINE (NAMENDA) [Concomitant]
  8. MENTHOL-ZINC OXIDE (CALMOSEPTINE) [Concomitant]
  9. LORAZEPAM (ATIVAN) [Concomitant]
  10. GLIPIZIDE (GLUCOTROL) [Concomitant]
  11. METFORMIN (GLUCOPHAGE) [Concomitant]

REACTIONS (1)
  - Acute kidney injury [None]

NARRATIVE: CASE EVENT DATE: 20160803
